FAERS Safety Report 9375861 (Version 2)
Quarter: 2013Q3

REPORT INFORMATION
  Report Type: Spontaneous
  Country: JP (occurrence: JP)
  Receive Date: 20130628
  Receipt Date: 20130820
  Transmission Date: 20140515
  Serious: Yes (Life-Threatening, Hospitalization, Other)
  Sender: FDA-Public Use
  Company Number: JP-PFIZER INC-2013190664

PATIENT
  Age: 80 Year
  Sex: Female
  Weight: 61 kg

DRUGS (26)
  1. LYRICA [Suspect]
     Dosage: 25 MG, 2X/DAY (MORNING AND EVENING)
     Route: 048
     Dates: start: 20130224, end: 201306
  2. MEVAN [Concomitant]
     Dosage: 15 MG (MORNING: 5 MG, EVENING: 10 MG)
     Dates: start: 201211
  3. MEVAN [Concomitant]
     Dosage: 10 MG, 2X/DAY
     Dates: start: 20130224
  4. OLMETEC [Concomitant]
     Dosage: 20 MG, 1X/DAY, MORNING
     Dates: start: 201211, end: 201306
  5. OMEPRAL [Concomitant]
     Dosage: 20 MG, 1X/DAY EVENING
     Dates: start: 201211
  6. CEROCRAL [Concomitant]
     Dosage: 20 MG, 2X/DAY (MORNING AND EVENING)
     Dates: start: 201211
  7. MUCOSTA [Concomitant]
     Dosage: 1 DF, 3X/DAY (AFTER MEAL)
     Dates: start: 201211, end: 201306
  8. MUCOSTA [Concomitant]
     Dosage: 100 MG, 3X/DAY
     Dates: start: 20130224
  9. MUCOSTA [Concomitant]
     Dosage: 100 MG, 2X/DAY (MORNING AND EVENING)
     Dates: start: 201303
  10. MARZULENE S [Concomitant]
     Dosage: 1 DF, 3X/DAY (AFTER MEAL)
     Dates: start: 201211
  11. JUVELA N [Concomitant]
     Dosage: 100 MG, 3X/DAY (AFTER MEAL)
     Dates: start: 201211, end: 201306
  12. METHYCOBAL [Concomitant]
     Dosage: 500 UG, 3X/DAY (AFTER MEAL)
     Dates: start: 201211
  13. MAGMITT [Concomitant]
     Dosage: 1000 MG, 2X/DAY (NOON: 1000 MG, EVENING: 1000 MG)
     Dates: start: 201211
  14. MAGMITT [Concomitant]
     Dosage: 660 MG, 3X/DAY (AFTER MEAL)
     Dates: start: 201303
  15. MYSLEE [Concomitant]
     Dosage: 10 MG, AS NEEDED
     Dates: start: 201211
  16. GOSHAJINKIGAN [Concomitant]
     Dosage: 1 DF, 2X/DAY (MORNING AND EVENING
  17. HYALEIN [Concomitant]
     Dosage: UNK
     Dates: start: 20130304
  18. NEXIUM [Concomitant]
     Dosage: 10 MG, 1X/DAY EVENING
     Dates: start: 20130224, end: 201303
  19. LETRAC [Concomitant]
     Dosage: 60 MG, 3X/DAY
     Dates: start: 20130224, end: 201303
  20. PODONIN S [Concomitant]
     Dosage: 0.5 G, 3X/DAY
     Dates: start: 20130224, end: 201306
  21. MOHRUS [Concomitant]
     Dosage: 1 DF, 1X/DAY
     Dates: start: 201212
  22. THREENOFEN [Concomitant]
     Dosage: 1 DF, AS NEEDED
     Dates: start: 201303, end: 201306
  23. THREENOFEN [Concomitant]
     Dosage: 1 DF, 2X/DAY (MORNING AND EVENING)
     Dates: start: 201303
  24. MEVALOTIN [Concomitant]
     Dosage: 10 MG, 2X/DAY (MORNING AND EVENING)
     Dates: start: 201303
  25. OMEPRAZON [Concomitant]
     Dosage: 10 MG, 1X/DAY
     Dates: start: 201303, end: 201306
  26. GASTER [Concomitant]
     Dosage: 10 MG, 1X/DAY
     Dates: start: 201306

REACTIONS (1)
  - Myelodysplastic syndrome [Not Recovered/Not Resolved]
